FAERS Safety Report 6577549-9 (Version None)
Quarter: 2010Q1

REPORT INFORMATION
  Report Type: 
  Country: None (occurrence: None)
  Receive Date: 20100211
  Receipt Date: 20100127
  Transmission Date: 20100710
  Serious: No
  Sender: FDA-Public Use
  Company Number: DE-JNJFOC-20100100059

PATIENT
  Sex: Female
  Weight: 60 kg

DRUGS (2)
  1. DURAGESIC-100 [Suspect]
     Indication: POLYNEUROPATHY
     Route: 062
     Dates: start: 20091101
  2. SULFUR [Suspect]
     Indication: DRUG USE FOR UNKNOWN INDICATION
     Route: 065

REACTIONS (5)
  - APPLICATION SITE EROSION [None]
  - APPLICATION SITE ERYTHEMA [None]
  - DRUG ADMINISTERED AT INAPPROPRIATE SITE [None]
  - DRUG EFFECT DECREASED [None]
  - PRODUCT QUALITY ISSUE [None]
